FAERS Safety Report 22331618 (Version 1)
Quarter: 2023Q2

REPORT INFORMATION
  Report Type: Spontaneous
  Country: TN (occurrence: TN)
  Receive Date: 20230517
  Receipt Date: 20230517
  Transmission Date: 20230722
  Serious: Yes (Hospitalization, Other)
  Sender: FDA-Public Use
  Company Number: TN-MLMSERVICE-20230501-4255760-1

PATIENT
  Age: 27 Year
  Sex: Male

DRUGS (3)
  1. ACETAZOLAMIDE [Interacting]
     Active Substance: ACETAZOLAMIDE
     Indication: Osteo-meningeal breaches
  2. CARBAMAZEPINE [Interacting]
     Active Substance: CARBAMAZEPINE
     Indication: Partial seizures
  3. CEFOTAXIME [Concomitant]
     Active Substance: CEFOTAXIME SODIUM
     Indication: Prophylaxis

REACTIONS (4)
  - Drug-induced liver injury [Recovering/Resolving]
  - Drug interaction [Unknown]
  - Drug level increased [Unknown]
  - Hepatocellular injury [Recovering/Resolving]
